FAERS Safety Report 5403899-5 (Version None)
Quarter: 2007Q3

REPORT INFORMATION
  Report Type: 
  Country: None (occurrence: None)
  Receive Date: 20070731
  Receipt Date: 20070731
  Transmission Date: 20080115
  Serious: Yes (Other)
  Sender: FDA-Public Use
  Company Number: None

PATIENT
  Age: 32 Year
  Sex: Female
  Weight: 73.4827 kg

DRUGS (1)
  1. CLINDAMTCIN 150 MG [Suspect]
     Dosage: 150 4 TIMES A DAY DENTAL
     Route: 004
     Dates: start: 20070724, end: 20070730

REACTIONS (7)
  - CHILLS [None]
  - INFLUENZA LIKE ILLNESS [None]
  - INSOMNIA [None]
  - MICTURITION URGENCY [None]
  - ORAL INTAKE REDUCED [None]
  - PHARYNGOLARYNGEAL PAIN [None]
  - PYREXIA [None]
